FAERS Safety Report 6229331-X (Version None)
Quarter: 2009Q2

REPORT INFORMATION
  Report Type: 
  Country: None (occurrence: None)
  Receive Date: 20090609
  Receipt Date: 20090514
  Transmission Date: 20091009
  Serious: Yes (Hospitalization)
  Sender: FDA-Public Use
  Company Number: 2009S1000251

PATIENT
  Age: 21 Year
  Sex: Female

DRUGS (2)
  1. VENLAFAXINE HCL EXTENDED-RELEASE [Suspect]
     Indication: DEPRESSION
     Dosage: 75 MG; QD; PO
     Route: 048
     Dates: start: 20090401
  2. LORAZEPAM [Concomitant]

REACTIONS (4)
  - ANXIETY [None]
  - DEPRESSED MOOD [None]
  - DEPRESSION [None]
  - SELF-INJURIOUS IDEATION [None]
